FAERS Safety Report 16442592 (Version 1)
Quarter: 2019Q2

REPORT INFORMATION
  Report Type: Spontaneous
  Country: GT (occurrence: GT)
  Receive Date: 20190617
  Receipt Date: 20190617
  Transmission Date: 20190711
  Serious: Yes (Hospitalization, Other)
  Sender: FDA-Public Use
  Company Number: GT-009507513-1906GTM006031

PATIENT
  Age: 90 Year
  Sex: Male

DRUGS (2)
  1. KEYTRUDA [Suspect]
     Active Substance: PEMBROLIZUMAB
     Indication: PROSTATE CANCER
     Dosage: UNK
  2. ELIGARD [Suspect]
     Active Substance: LEUPROLIDE ACETATE
     Indication: PROSTATE CANCER
     Dosage: UNK

REACTIONS (5)
  - Lethargy [Recovered/Resolved]
  - Eastern Cooperative Oncology Group performance status worsened [Unknown]
  - Thrombosis [Recovered/Resolved]
  - Product use in unapproved indication [Unknown]
  - Asthenia [Recovered/Resolved]
